FAERS Safety Report 5798379-1 (Version None)
Quarter: 2008Q3

REPORT INFORMATION
  Report Type: 
  Country: None (occurrence: None)
  Receive Date: 20080702
  Receipt Date: 20080501
  Transmission Date: 20090109
  Serious: No
  Sender: FDA-Public Use
  Company Number: A0725846A

PATIENT
  Age: 61 Year
  Sex: Male

DRUGS (2)
  1. PARNATE [Suspect]
     Dosage: 30MG TWICE PER DAY
     Route: 048
  2. TRILEPTAL [Concomitant]

REACTIONS (1)
  - DRUG INEFFECTIVE [None]
